FAERS Safety Report 9935540 (Version 6)
Quarter: 2014Q3

REPORT INFORMATION
  Report Type: Spontaneous
  Country: GB (occurrence: GB)
  Receive Date: 20140228
  Receipt Date: 20140826
  Transmission Date: 20150326
  Serious: Yes (Life-Threatening, Hospitalization, Disabling, Other)
  Sender: FDA-Public Use
  Company Number: PHFR2014GB001846

PATIENT
  Age: 74 Year
  Sex: Female

DRUGS (5)
  1. MEBEVERINE HYDROCHLORIDE [Concomitant]
     Active Substance: MEBEVERINE HYDROCHLORIDE
     Dosage: 405 G
     Route: 048
  2. CLOZARIL [Suspect]
     Active Substance: CLOZAPINE
     Dosage: UNK
     Route: 048
     Dates: start: 20010701
  3. CLOZARIL [Suspect]
     Active Substance: CLOZAPINE
     Dosage: 600 MG
     Route: 048
  4. CLOZARIL [Suspect]
     Active Substance: CLOZAPINE
     Dosage: UNK
  5. OMEPRAZOLE. [Concomitant]
     Active Substance: OMEPRAZOLE
     Dosage: 20 G

REACTIONS (8)
  - C-reactive protein increased [Unknown]
  - Tremor [Unknown]
  - Endometrial adenocarcinoma [Not Recovered/Not Resolved]
  - Ovarian cancer [Unknown]
  - Blood alkaline phosphatase increased [Unknown]
  - Blood pressure fluctuation [Unknown]
  - Platelet count increased [Recovered/Resolved]
  - Haemoglobin decreased [Unknown]

NARRATIVE: CASE EVENT DATE: 20140131
